FAERS Safety Report 5895928-X (Version None)
Quarter: 2008Q3

REPORT INFORMATION
  Report Type: 
  Country: None (occurrence: None)
  Receive Date: 20080924
  Receipt Date: 20080911
  Transmission Date: 20090109
  Serious: Yes (Death, Life-Threatening, Hospitalization, Other)
  Sender: FDA-Public Use
  Company Number: NL-ROXANE LABORATORIES, INC.-2008-RO-00044RO

PATIENT
  Age: 35 Year
  Sex: Female

DRUGS (4)
  1. CITALOPRAM HYDROBROMIDE [Suspect]
  2. ANTIPSYCHOTIC [Suspect]
  3. OTHER DRUGS [Concomitant]
  4. DIAZEPAM [Concomitant]
     Indication: CONVULSION

REACTIONS (7)
  - ANOXIC ENCEPHALOPATHY [None]
  - CARDIAC ARREST [None]
  - CONVULSION [None]
  - DEPRESSED LEVEL OF CONSCIOUSNESS [None]
  - DRUG TOXICITY [None]
  - HYPOKALAEMIA [None]
  - STAPHYLOCOCCAL SEPSIS [None]
